FAERS Safety Report 21393146 (Version 3)
Quarter: 2022Q4

REPORT INFORMATION
  Report Type: Report from Study
  Country: IT (occurrence: IT)
  Receive Date: 20220929
  Receipt Date: 20221018
  Transmission Date: 20230113
  Serious: Yes (Hospitalization)
  Sender: FDA-Public Use
  Company Number: IT-ABBVIE-4132347

PATIENT
  Sex: Male
  Weight: 70 kg

DRUGS (2)
  1. UPADACITINIB [Suspect]
     Active Substance: UPADACITINIB
     Indication: Product used for unknown indication
     Dosage: 30 MG
     Dates: end: 202209
  2. UPADACITINIB [Suspect]
     Active Substance: UPADACITINIB
     Indication: Product used for unknown indication
     Dosage: 30 MG
     Route: 048
     Dates: end: 202209

REACTIONS (2)
  - Urinary tract candidiasis [Recovered/Resolved]
  - Pyelonephritis fungal [Unknown]

NARRATIVE: CASE EVENT DATE: 20220901
